FAERS Safety Report 5790760-X (Version None)
Quarter: 2008Q2

REPORT INFORMATION
  Report Type: 
  Country: None (occurrence: None)
  Receive Date: 20080626
  Receipt Date: 20080506
  Transmission Date: 20081010
  Serious: No
  Sender: FDA-Public Use
  Company Number: A0726453A

PATIENT
  Age: 55 Year
  Sex: Female

DRUGS (4)
  1. ALLI [Suspect]
     Dates: start: 20080428
  2. ANTIDEPRESSANT [Concomitant]
  3. ESTROGEN [Concomitant]
  4. DIET PILL [Concomitant]

REACTIONS (3)
  - DYSSTASIA [None]
  - HEART RATE DECREASED [None]
  - HYPOTENSION [None]
